FAERS Safety Report 8816926 (Version 1)
Quarter: 2012Q4

REPORT INFORMATION
  Report Type: Spontaneous
  Country: US (occurrence: None)
  Receive Date: 20121002
  Receipt Date: 20121002
  Transmission Date: 20130627
  Serious: Yes (Life-Threatening, Other)
  Sender: FDA-Public Use
  Company Number: None

PATIENT
  Age: 40 Year
  Sex: Female
  Weight: 104.33 kg

DRUGS (2)
  1. CYMBALTA [Suspect]
     Indication: MAJOR DEPRESSION
     Dosage: 90 mg taken as 3 30mg capsules 1x daily po
     Route: 048
     Dates: start: 20120201, end: 20120909
  2. CYMBALTA [Suspect]
     Indication: CHRONIC DEPRESSION
     Dosage: 90 mg taken as 3 30mg capsules 1x daily po
     Route: 048
     Dates: start: 20120201, end: 20120909

REACTIONS (13)
  - Drug withdrawal syndrome [None]
  - Anger [None]
  - Anger [None]
  - Depression [None]
  - Anxiety [None]
  - Suicidal ideation [None]
  - Loss of employment [None]
  - Delusion [None]
  - Hallucinations, mixed [None]
  - Hyperhidrosis [None]
  - Bipolar disorder [None]
  - Pain [None]
  - Economic problem [None]
